FAERS Safety Report 19301897 (Version 1)
Quarter: 2021Q2

REPORT INFORMATION
  Report Type: Spontaneous
  Country: US (occurrence: US)
  Receive Date: 20210525
  Receipt Date: 20210525
  Transmission Date: 20210717
  Serious: No
  Sender: FDA-Public Use
  Company Number: None

PATIENT
  Age: 75 Year
  Sex: Female
  Weight: 65.25 kg

DRUGS (1)
  1. NP THYROID [Suspect]
     Active Substance: LEVOTHYROXINE\LIOTHYRONINE
     Indication: AUTOIMMUNE THYROIDITIS

REACTIONS (8)
  - Fatigue [None]
  - Somnolence [None]
  - Oedema [None]
  - Recalled product administered [None]
  - Swelling [None]
  - Extrasystoles [None]
  - Apathy [None]
  - Thyroid hormones decreased [None]

NARRATIVE: CASE EVENT DATE: 20210317
